FAERS Safety Report 4842976-4 (Version None)
Quarter: 2005Q4

REPORT INFORMATION
  Report Type: 
  Country: None (occurrence: None)
  Receive Date: 20051130
  Receipt Date: 20051115
  Transmission Date: 20060501
  Serious: Yes (Death, Congenital Anomaly)
  Sender: FDA-Public Use
  Company Number: 2005S1000325

PATIENT
  Sex: Female
  Weight: 202 kg

DRUGS (1)
  1. SORIATANE [Suspect]
     Dosage: 25 MG; QD; IU
     Route: 064
     Dates: start: 20000101

REACTIONS (9)
  - CONGENITAL ANOMALY [None]
  - DEATH NEONATAL [None]
  - DRUG EXPOSURE BEFORE PREGNANCY [None]
  - HEART DISEASE CONGENITAL [None]
  - PREGNANCY OF PARTNER [None]
  - PULMONARY MALFORMATION [None]
  - RIB DEFORMITY [None]
  - SMALL FOR DATES BABY [None]
  - TRANSMISSION OF DRUG VIA SEMEN [None]
